FAERS Safety Report 5957497-5 (Version None)
Quarter: 2008Q4

REPORT INFORMATION
  Report Type: 
  Country: None (occurrence: None)
  Receive Date: 20081113
  Receipt Date: 20081106
  Transmission Date: 20090506
  Serious: Yes (Other)
  Sender: FDA-Public Use
  Company Number: CHPA2008US19192

PATIENT
  Age: 4 Year
  Sex: Male
  Weight: 20.9 kg

DRUGS (4)
  1. TRIAMINIC UNKNOWN (NCH) (UNKNOWN) UNKNOWN [Suspect]
     Indication: HEADACHE
     Dosage: ORAL
     Route: 048
     Dates: start: 20080801
  2. CHILDREN'S TYLENOL (PARACETAMOL) [Suspect]
     Indication: HEADACHE
     Dosage: 240 MG, ONCE/SINGLE, ORAL; 240 MG; ORAL
     Route: 048
     Dates: start: 20080801
  3. CHILDREN'S TYLENOL (PARACETAMOL) [Suspect]
     Indication: HEADACHE
     Dosage: 240 MG, ONCE/SINGLE, ORAL; 240 MG; ORAL
     Route: 048
     Dates: start: 20081018
  4. CHILDREN'S TYLENOL (PARACETAMOL) [Suspect]
     Indication: HEADACHE
     Dosage: 240 MG, ONCE/SINGLE, ORAL; 240 MG; ORAL
     Route: 048
     Dates: start: 20081021

REACTIONS (1)
  - HYPERSENSITIVITY [None]
